FAERS Safety Report 15408667 (Version 1)
Quarter: 2018Q3

REPORT INFORMATION
  Report Type: Report from Study
  Country: JP (occurrence: JP)
  Receive Date: 20180920
  Receipt Date: 20180920
  Transmission Date: 20181010
  Serious: Yes (Other)
  Sender: FDA-Public Use
  Company Number: PHJP2018JP016418

PATIENT
  Age: 72 Year
  Sex: Female
  Weight: 51.4 kg

DRUGS (4)
  1. GLIVEC [Suspect]
     Active Substance: IMATINIB MESYLATE
     Indication: GASTROINTESTINAL STROMAL TUMOUR
     Dosage: 400 MG, QD, AFTER BREAKFAST
     Route: 048
     Dates: start: 20120516
  2. LANTUS [Concomitant]
     Active Substance: INSULIN GLARGINE
     Indication: DIABETES MELLITUS
     Dosage: 5 IU, QD, AT BEDTIME
     Route: 058
     Dates: start: 20120419
  3. SULPIRIDE [Concomitant]
     Active Substance: SULPIRIDE
     Indication: SOMATIC SYMPTOM DISORDER
     Dosage: 50 MG, BID (AFTER BREAKFAST AND AT BEDTIME)
     Route: 048
  4. SOLANAX [Concomitant]
     Active Substance: ALPRAZOLAM
     Indication: SOMATIC SYMPTOM DISORDER
     Dosage: 0.4 MG, BID
     Route: 048

REACTIONS (2)
  - Second primary malignancy [Recovering/Resolving]
  - Breast cancer [Recovering/Resolving]

NARRATIVE: CASE EVENT DATE: 20161109
